FAERS Safety Report 6853938 (Version 2)
Quarter: 2020Q3

REPORT INFORMATION
  Report Type: Spontaneous
  Country: SE (occurrence: SE)
  Receive Date: 20081216
  Receipt Date: 20090105
  Transmission Date: 20201104
  Serious: Yes (Death)
  Sender: FDA-Public Use
  Company Number: SE-ROCHE-600385

PATIENT
  Sex: Female

DRUGS (10)
  1. IBANDRONIC ACID. [Suspect]
     Active Substance: IBANDRONIC ACID
     Indication: BREAST CANCER METASTATIC
     Dosage: CO?INDICATION BONE METASTASIS
     Route: 042
     Dates: start: 20070816
  2. ARIMIDEX [Concomitant]
     Active Substance: ANASTROZOLE
     Indication: BREAST CANCER
  3. FORLAX [Concomitant]
     Active Substance: POLYETHYLENE GLYCOL 4000
     Indication: CONSTIPATION
  4. IBANDRONIC ACID. [Suspect]
     Active Substance: IBANDRONIC ACID
     Route: 042
     Dates: start: 20080311, end: 20080424
  5. BETAPRED [Concomitant]
     Active Substance: BETAMETHASONE SODIUM PHOSPHATE
  6. BISOPROLOL [Concomitant]
     Active Substance: BISOPROLOL
  7. PLAVIX [Concomitant]
     Active Substance: CLOPIDOGREL BISULFATE
  8. IBANDRONIC ACID. [Suspect]
     Active Substance: IBANDRONIC ACID
     Route: 048
     Dates: start: 20071213, end: 20080219
  9. ZOPICLONE [Concomitant]
     Active Substance: ZOPICLONE
     Indication: SLEEP DISORDER
     Dosage: DRUG REPORTED AS ZOPIKLON
  10. OXYCONTIN [Concomitant]
     Active Substance: OXYCODONE HYDROCHLORIDE
     Indication: PAIN

REACTIONS (5)
  - Metastases to liver [Fatal]
  - Disease progression [Fatal]
  - Abdominal pain upper [Unknown]
  - Vomiting [Unknown]
  - Nausea [Unknown]

NARRATIVE: CASE EVENT DATE: 20080101
